FAERS Safety Report 22620597 (Version 1)
Quarter: 2023Q2

REPORT INFORMATION
  Report Type: Spontaneous
  Country: US (occurrence: US)
  Receive Date: 20230620
  Receipt Date: 20230620
  Transmission Date: 20230721
  Serious: Yes (Hospitalization)
  Sender: FDA-Public Use
  Company Number: US-BEH-2023159925

PATIENT
  Sex: Female

DRUGS (1)
  1. ZEMAIRA [Suspect]
     Active Substance: .ALPHA.1-PROTEINASE INHIBITOR HUMAN
     Indication: Emphysema
     Dosage: 8544 MILLIGRAM, QOW
     Route: 042
     Dates: start: 202303

REACTIONS (3)
  - Back disorder [Unknown]
  - Weight decreased [Unknown]
  - Decreased appetite [Unknown]
